FAERS Safety Report 5405956-6 (Version None)
Quarter: 2007Q3

REPORT INFORMATION
  Report Type: 
  Country: None (occurrence: None)
  Receive Date: 20070806
  Receipt Date: 20070619
  Transmission Date: 20080115
  Serious: Yes (Hospitalization, Other)
  Sender: FDA-Public Use
  Company Number: PHEH2007US05679

PATIENT
  Age: 51 Year
  Sex: Male

DRUGS (6)
  1. ZELNORM [Suspect]
     Indication: CONSTIPATION
     Dosage: 6 MG, BID
     Route: 048
     Dates: start: 20050101, end: 20070418
  2. PLAVIX [Concomitant]
     Indication: ANTICOAGULANT THERAPY
  3. ZOCOR [Concomitant]
     Indication: HYPERLIPIDAEMIA
  4. LISINOPRIL [Concomitant]
     Indication: HYPERTENSION
  5. FOLIC ACID [Concomitant]
  6. ASPIRIN [Concomitant]

REACTIONS (7)
  - APHASIA [None]
  - CEREBRAL ARTERY OCCLUSION [None]
  - CEREBRAL INFARCTION [None]
  - CEREBROVASCULAR ACCIDENT [None]
  - FATIGUE [None]
  - MEMORY IMPAIRMENT [None]
  - NERVOUSNESS [None]
